FAERS Safety Report 5847771-5 (Version None)
Quarter: 2008Q3

REPORT INFORMATION
  Report Type: 
  Country: None (occurrence: None)
  Receive Date: 20080814
  Receipt Date: 20080804
  Transmission Date: 20090109
  Serious: Yes (Other)
  Sender: FDA-Public Use
  Company Number: GXKR2008AT07299

PATIENT
  Age: 9 Year
  Sex: Female

DRUGS (5)
  1. PREDNISONE [Suspect]
     Indication: IMMUNOSUPPRESSION
  2. CYCLOSPORINE [Suspect]
     Indication: IMMUNOSUPPRESSION
  3. FLUDARABINE PHOSPHATE [Concomitant]
  4. MELPHALAN (MELPHALAN) [Concomitant]
  5. ATG (ANTITHYMOCYTE IMMUNOGLOBULIN (RABBIT)) [Concomitant]

REACTIONS (7)
  - ADENOVIRUS INFECTION [None]
  - FATIGUE [None]
  - HEADACHE [None]
  - HEPATOSPLENOMEGALY [None]
  - LYMPHOHISTIOCYTOSIS [None]
  - PANCYTOPENIA [None]
  - PYREXIA [None]
